FAERS Safety Report 4380410-1 (Version None)
Quarter: 2004Q2

REPORT INFORMATION
  Report Type: 
  Country: None (occurrence: None)
  Receive Date: 20040617
  Receipt Date: 20040617
  Transmission Date: 20050107
  Serious: No
  Sender: FDA-Public Use
  Company Number: None

PATIENT
  Age: 80 Year
  Sex: Male

DRUGS (1)
  1. LOPRESSOR [Suspect]
     Dosage: 1/4 TAB

REACTIONS (3)
  - COMA [None]
  - MEDICATION ERROR [None]
  - SYNCOPE [None]
